FAERS Safety Report 26006459 (Version 1)
Quarter: 2025Q4

REPORT INFORMATION
  Report Type: Spontaneous
  Country: US (occurrence: None)
  Receive Date: 20251105
  Receipt Date: 20251105
  Transmission Date: 20260117
  Serious: Yes (unspecified)
  Sender: FDA-CTU
  Company Number: None

PATIENT
  Age: 64 Year
  Sex: Female
  Weight: 86.3 kg

DRUGS (8)
  1. REPATHA [Suspect]
     Active Substance: EVOLOCUMAB
     Indication: Arteriosclerosis
     Dosage: OTHER FREQUENCY : EVERY 14 DAYS;?
     Route: 058
     Dates: start: 20250801
  2. ASPIRIN [Concomitant]
     Active Substance: ASPIRIN
  3. ATORVASTATIN [Concomitant]
     Active Substance: ATORVASTATIN
  4. EZETIMIBE [Concomitant]
     Active Substance: EZETIMIBE
  5. estradiol 0.1mg/24 patch [Concomitant]
  6. METOPROLOL SUCCINATE [Concomitant]
     Active Substance: METOPROLOL SUCCINATE
  7. OMEPRAZOLE [Concomitant]
     Active Substance: OMEPRAZOLE
  8. PROGESTERONE [Concomitant]
     Active Substance: PROGESTERONE

REACTIONS (5)
  - Hypoaesthesia [None]
  - Injection site pain [None]
  - Injection site pain [None]
  - Gastrooesophageal reflux disease [None]
  - Peripheral vascular disorder [None]

NARRATIVE: CASE EVENT DATE: 20251105
